FAERS Safety Report 5231244-7 (Version None)
Quarter: 2007Q1

REPORT INFORMATION
  Report Type: 
  Country: None (occurrence: None)
  Receive Date: 20070206
  Receipt Date: 20070126
  Transmission Date: 20070707
  Serious: Yes (Other)
  Sender: FDA-Public Use
  Company Number: 2006AP04905

PATIENT
  Age: 23586 Day
  Sex: Male
  Weight: 64 kg

DRUGS (8)
  1. CASODEX [Suspect]
     Indication: PROSTATE CANCER
     Route: 048
     Dates: start: 20060602
  2. CASODEX [Suspect]
     Route: 048
  3. LEUPROLIDE ACETATE [Concomitant]
     Indication: PROSTATE CANCER
     Route: 058
     Dates: start: 20060602
  4. OSTELUC [Concomitant]
     Indication: URETHRAL PAIN
     Route: 048
     Dates: start: 20060712
  5. TRANSAMIN [Concomitant]
     Indication: HAEMATURIA
     Route: 048
     Dates: start: 20060814, end: 20060928
  6. ULGUT [Concomitant]
     Indication: HAEMATURIA
     Route: 048
     Dates: start: 20060814, end: 20060928
  7. BUP-4 [Concomitant]
     Route: 048
  8. RADIOTHERAPY [Concomitant]
     Dosage: 70 GY TO PELVIS
     Dates: start: 20060626, end: 20060814

REACTIONS (3)
  - ANAEMIA POSTOPERATIVE [None]
  - DIZZINESS [None]
  - HYPOTENSION [None]
